FAERS Safety Report 5270123-6 (Version None)
Quarter: 2007Q1

REPORT INFORMATION
  Report Type: 
  Country: None (occurrence: None)
  Receive Date: 20070320
  Receipt Date: 20070319
  Transmission Date: 20070707
  Serious: Yes (Life-Threatening, Hospitalization)
  Sender: FDA-Public Use
  Company Number: US-BRISTOL-MYERS SQUIBB COMPANY-13589833

PATIENT
  Age: 58 Year
  Sex: Female
  Weight: 73 kg

DRUGS (22)
  1. TEQUIN [Suspect]
     Indication: BRONCHITIS
     Route: 048
     Dates: start: 20041230, end: 20050112
  2. FLOVENT [Suspect]
     Dosage: 2 PUFFS TWICE DAILY
     Route: 055
  3. ATENOLOL [Concomitant]
  4. COLACE [Concomitant]
  5. SINGULAIR [Concomitant]
  6. ALDACTONE [Concomitant]
  7. COMPAZINE [Concomitant]
  8. DIFLUCAN [Concomitant]
     Indication: VAGINAL CANDIDIASIS
  9. MYCELEX [Concomitant]
     Indication: VAGINAL CANDIDIASIS
     Route: 048
  10. MECLIZINE [Concomitant]
  11. TRAZODONE HCL [Concomitant]
  12. LASIX [Concomitant]
  13. NEXIUM [Concomitant]
     Indication: GASTROOESOPHAGEAL REFLUX DISEASE
  14. WELLBUTRIN [Concomitant]
     Indication: EX-SMOKER
  15. LEVAQUIN [Concomitant]
     Indication: WOUND INFECTION
     Dates: start: 20041025, end: 20041103
  16. MEDROL [Concomitant]
  17. AVELOX [Concomitant]
  18. HYTUSS [Concomitant]
  19. ENTEX LA [Concomitant]
  20. SUDAFED 12 HOUR [Concomitant]
  21. PROVENTIL-HFA [Concomitant]
  22. ALBUTEROL [Concomitant]
     Route: 055

REACTIONS (4)
  - DIABETES MELLITUS [None]
  - DIABETIC HYPEROSMOLAR COMA [None]
  - ENCEPHALOPATHY [None]
  - RENAL FAILURE [None]
